FAERS Safety Report 10178049 (Version 2)
Quarter: 2014Q2

REPORT INFORMATION
  Report Type: Report from Study
  Country: US (occurrence: US)
  Receive Date: 20140518
  Receipt Date: 20140527
  Transmission Date: 20141212
  Serious: Yes (Other)
  Sender: FDA-Public Use
  Company Number: PHEH2013US026864

PATIENT
  Age: 56 Year
  Sex: Male

DRUGS (1)
  1. EXFORGE [Suspect]
     Dosage: 1 DF (VALS 320MG, AMLO 10MG)
     Dates: start: 20131217

REACTIONS (3)
  - Crohn^s disease [Not Recovered/Not Resolved]
  - Hypersomnia [Unknown]
  - Malaise [Not Recovered/Not Resolved]
